FAERS Safety Report 8881300 (Version 4)
Quarter: 2013Q1

REPORT INFORMATION
  Report Type: Spontaneous
  Country: JP (occurrence: JP)
  Receive Date: 20121031
  Receipt Date: 20130305
  Transmission Date: 20140127
  Serious: Yes (Life-Threatening, Hospitalization)
  Sender: FDA-Public Use
  Company Number: JP-JNJFOC-20121016349

PATIENT
  Age: 85 Year
  Sex: Male
  Weight: 62 kg

DRUGS (6)
  1. TRAMCET [Suspect]
     Indication: PAIN
     Dosage: 1 PER DAY
     Route: 048
     Dates: start: 20120904, end: 20121004
  2. OPALMON [Concomitant]
     Route: 048
  3. GLIMICRON [Concomitant]
     Route: 048
  4. NEUROVITAN [Concomitant]
     Route: 048
  5. TOCOPHEROL ACETATE [Concomitant]
     Route: 048
  6. SENNOSIDE [Concomitant]
     Route: 048

REACTIONS (3)
  - Peritonitis [Unknown]
  - Ileus [Unknown]
  - Constipation [Unknown]
